FAERS Safety Report 17029422 (Version 1)
Quarter: 2019Q4

REPORT INFORMATION
  Report Type: Spontaneous
  Country: CA (occurrence: CA)
  Receive Date: 20191114
  Receipt Date: 20191114
  Transmission Date: 20200122
  Serious: Yes (Other)
  Sender: FDA-Public Use
  Company Number: CA-TEVA-2019-CA-1136225

PATIENT
  Age: 62 Year
  Sex: Female
  Weight: 77 kg

DRUGS (1)
  1. OLOPATADINE HYDROCHLORIDE. [Suspect]
     Active Substance: OLOPATADINE HYDROCHLORIDE
     Indication: HYPERSENSITIVITY
     Dosage: 2 GTT DAILY;
     Route: 047

REACTIONS (1)
  - Dizziness [Recovering/Resolving]
